FAERS Safety Report 9402746 (Version 4)
Quarter: 2013Q3

REPORT INFORMATION
  Report Type: Report from Study
  Country: DK (occurrence: DK)
  Receive Date: 20130716
  Receipt Date: 20130903
  Transmission Date: 20140515
  Serious: Yes (Hospitalization)
  Sender: FDA-Public Use
  Company Number: DK-TEVA-419013ISR

PATIENT
  Age: 57 Year
  Sex: Female

DRUGS (6)
  1. PACLITAXEL [Suspect]
     Indication: OVARIAN CANCER
     Dosage: 282 MILLIGRAM DAILY; LAST DOSE PRIOR TO SAE ON 16/5/2013 (282MG)
     Route: 042
     Dates: start: 20130516, end: 20130516
  2. BEVACIZUMAB [Suspect]
     Indication: OVARIAN CANCER
     Dosage: 825 MILLIGRAM DAILY; LAST DOSE PRIOR TO SAE ON 16/5/2013 (825 MG)
     Route: 042
     Dates: start: 20130516, end: 20130516
  3. CARBOPLATIN [Suspect]
     Indication: OVARIAN CANCER
     Dosage: 395 MILLIGRAM DAILY; LAST DOSE PRIOR TO SAE ON 16/5/2013 (395MG)
     Route: 042
     Dates: start: 20130516, end: 20130516
  4. CORODIL [Concomitant]
     Indication: HYPERTENSION
     Route: 048
     Dates: end: 20130516
  5. VOGALENE [Concomitant]
     Indication: HYPOTENSION
  6. VOGALENE [Concomitant]
     Indication: ANTIEMETIC SUPPORTIVE CARE

REACTIONS (1)
  - Hyponatraemia [Recovered/Resolved]
